APPROVED DRUG PRODUCT: ERLOTINIB HYDROCHLORIDE
Active Ingredient: ERLOTINIB HYDROCHLORIDE
Strength: EQ 25MG BASE
Dosage Form/Route: TABLET;ORAL
Application: A211083 | Product #001
Applicant: ACCORD HEALTHCARE INC
Approved: Jul 2, 2020 | RLD: No | RS: No | Type: DISCN